FAERS Safety Report 11409811 (Version 1)
Quarter: 2015Q3

REPORT INFORMATION
  Report Type: Spontaneous
  Country: FR (occurrence: FR)
  Receive Date: 20150824
  Receipt Date: 20150824
  Transmission Date: 20151125
  Serious: Yes (Hospitalization)
  Sender: FDA-Public Use
  Company Number: FR-SA-2015SA125707

PATIENT
  Age: 93 Year
  Sex: Male
  Weight: 80.5 kg

DRUGS (7)
  1. BISOPROLOL [Concomitant]
     Active Substance: BISOPROLOL
  2. PLAVIX [Suspect]
     Active Substance: CLOPIDOGREL BISULFATE
     Route: 048
     Dates: start: 20150518, end: 20150625
  3. ZYLORIC [Concomitant]
     Active Substance: ALLOPURINOL
  4. LASILIX [Concomitant]
     Active Substance: FUROSEMIDE
  5. CORDARONE [Concomitant]
     Active Substance: AMIODARONE HYDROCHLORIDE
     Indication: ACUTE CORONARY SYNDROME
  6. KARDEGIC [Suspect]
     Active Substance: ASPIRIN LYSINE
     Route: 048
     Dates: start: 20150519
  7. AMLOR [Concomitant]
     Active Substance: AMLODIPINE BESYLATE

REACTIONS (2)
  - Cerebral infarction [Unknown]
  - Hemiparesis [Unknown]

NARRATIVE: CASE EVENT DATE: 20150601
